FAERS Safety Report 7477510-6 (Version None)
Quarter: 2011Q2

REPORT INFORMATION
  Report Type: 
  Country: None (occurrence: None)
  Receive Date: 20110510
  Receipt Date: 20110510
  Transmission Date: 20111010
  Serious: Yes (Other)
  Sender: FDA-Public Use
  Company Number: None

PATIENT
  Age: 27 Year
  Sex: Female
  Weight: 90.7194 kg

DRUGS (3)
  1. AVIANE-21 [Suspect]
     Dosage: PILL DAILY PO
     Route: 048
     Dates: start: 20070401, end: 20110415
  2. COPAXONE [Concomitant]
  3. LABETALOL [Concomitant]

REACTIONS (3)
  - MULTIPLE SCLEROSIS [None]
  - HYPERTENSION [None]
  - PULMONARY EMBOLISM [None]
